FAERS Safety Report 14313843 (Version 2)
Quarter: 2018Q1

REPORT INFORMATION
  Report Type: Spontaneous
  Country: JP (occurrence: JP)
  Receive Date: 20171221
  Receipt Date: 20180202
  Transmission Date: 20180509
  Serious: Yes (Other)
  Sender: FDA-Public Use
  Company Number: JP-PFIZER INC-2017536432

PATIENT
  Age: 4 Year
  Sex: Male

DRUGS (2)
  1. ZINC. [Concomitant]
     Active Substance: ZINC
     Dosage: UNK
     Route: 048
  2. GENOTROPIN [Suspect]
     Active Substance: SOMATROPIN
     Indication: SMALL FOR DATES BABY
     Dosage: 0.8 MG, DAILY
     Route: 058
     Dates: start: 201609, end: 201711

REACTIONS (1)
  - Nephrotic syndrome [Unknown]

NARRATIVE: CASE EVENT DATE: 20171123
